FAERS Safety Report 21055050 (Version 5)
Quarter: 2022Q3

REPORT INFORMATION
  Report Type: Report from Study
  Country: US (occurrence: US)
  Receive Date: 20220707
  Receipt Date: 20220830
  Transmission Date: 20221026
  Serious: Yes (Hospitalization)
  Sender: FDA-Public Use
  Company Number: US-ABBVIE-22K-163-4457411-00

PATIENT
  Sex: Male

DRUGS (6)
  1. IMBRUVICA [Suspect]
     Active Substance: IBRUTINIB
     Indication: B-cell small lymphocytic lymphoma
     Route: 048
     Dates: start: 202201, end: 2022
  2. IMBRUVICA [Suspect]
     Active Substance: IBRUTINIB
     Route: 048
     Dates: start: 2022
  3. HYDRALAZINE [Concomitant]
     Active Substance: HYDRALAZINE HYDROCHLORIDE
     Indication: Blood pressure measurement
  4. HYDRALAZINE [Concomitant]
     Active Substance: HYDRALAZINE HYDROCHLORIDE
  5. ATENOLOL [Concomitant]
     Active Substance: ATENOLOL
     Indication: Blood pressure measurement
  6. ATENOLOL [Concomitant]
     Active Substance: ATENOLOL

REACTIONS (14)
  - Pain in jaw [Unknown]
  - Neck pain [Unknown]
  - Arthralgia [Unknown]
  - Muscle spasms [Unknown]
  - Pharyngeal swelling [Unknown]
  - Chest discomfort [Unknown]
  - Pericardial effusion [Unknown]
  - Weight increased [Unknown]
  - Pleural effusion [Unknown]
  - Blood pressure decreased [Recovered/Resolved]
  - Frustration tolerance decreased [Unknown]
  - Mobility decreased [Unknown]
  - Dyspnoea [Unknown]
  - Dizziness [Unknown]

NARRATIVE: CASE EVENT DATE: 20220101
